FAERS Safety Report 8588224-3 (Version None)
Quarter: 2012Q3

REPORT INFORMATION
  Report Type: 
  Country: None (occurrence: None)
  Receive Date: 20120803
  Receipt Date: 20120803
  Transmission Date: 20120928
  Serious: Yes (Other)
  Sender: FDA-Public Use
  Company Number: None

PATIENT
  Sex: Female

DRUGS (1)
  1. NAFTIN [Suspect]
     Indication: FUNGAL INFECTION
     Dosage: 2% TWICE A DAY
     Dates: start: 20120730, end: 20120731

REACTIONS (5)
  - RHINALGIA [None]
  - BURNING SENSATION [None]
  - OCULAR HYPERAEMIA [None]
  - SWELLING [None]
  - EYE IRRITATION [None]
